FAERS Safety Report 7903577-4 (Version None)
Quarter: 2011Q4

REPORT INFORMATION
  Report Type: 
  Country: None (occurrence: None)
  Receive Date: 20111109
  Receipt Date: 20111109
  Transmission Date: 20120403
  Serious: No
  Sender: FDA-Public Use
  Company Number: None

PATIENT
  Age: 77 Year
  Sex: Male
  Weight: 106.59 kg

DRUGS (1)
  1. SPIRIVA [Suspect]
     Indication: CHRONIC OBSTRUCTIVE PULMONARY DISEASE
     Dosage: 1 CAPSULE
     Route: 048
     Dates: start: 20110826, end: 20111031

REACTIONS (4)
  - ABASIA [None]
  - DISCOMFORT [None]
  - ARTHRALGIA [None]
  - JOINT SWELLING [None]
